FAERS Safety Report 4595623-3 (Version None)
Quarter: 2005Q1

REPORT INFORMATION
  Report Type: 
  Country: None (occurrence: None)
  Receive Date: 20050302
  Receipt Date: 20050221
  Transmission Date: 20050727
  Serious: Yes (Life-Threatening, Hospitalization, Other)
  Sender: FDA-Public Use
  Company Number: 200510652FR

PATIENT
  Age: 74 Year
  Sex: Female
  Weight: 70 kg

DRUGS (16)
  1. TAXOTERE [Suspect]
     Indication: PANCREATIC CARCINOMA
     Route: 042
     Dates: start: 20050103, end: 20050103
  2. FLUOROURACIL [Suspect]
     Indication: PANCREATIC CARCINOMA
     Route: 042
     Dates: start: 20050103, end: 20050104
  3. RADIOTHERAPY [Suspect]
     Indication: PANCREATIC CARCINOMA
     Dates: start: 20041129, end: 20050103
  4. AUGMENTIN '125' [Concomitant]
  5. GLUCOPHAGE [Concomitant]
  6. GLYBURIDE [Concomitant]
  7. TRIATEC [Concomitant]
     Indication: HYPERTENSION
  8. AMLODIPINE BESYLATE [Concomitant]
  9. ZOCOR [Concomitant]
  10. PLAVIX [Concomitant]
  11. FLUDEX [Concomitant]
  12. PREDNISOLONE [Concomitant]
  13. PRIMPERAN TAB [Concomitant]
  14. OMEPRAZOLE [Concomitant]
  15. SKENAN [Concomitant]
  16. ZOPHREN [Concomitant]

REACTIONS (20)
  - ASTHENIA [None]
  - B-CELL LYMPHOMA [None]
  - BLOOD CALCIUM DECREASED [None]
  - BLOOD GLUCOSE INCREASED [None]
  - BLOOD LACTATE DEHYDROGENASE INCREASED [None]
  - BLOOD MAGNESIUM DECREASED [None]
  - BLOOD PHOSPHORUS DECREASED [None]
  - CONFUSIONAL STATE [None]
  - DEHYDRATION [None]
  - EXTRASYSTOLES [None]
  - HYPERKALAEMIA [None]
  - HYPONATRAEMIA [None]
  - HYPOVOLAEMIC SHOCK [None]
  - LUNG INFECTION [None]
  - LYMPHOCYTOSIS [None]
  - MUCOSAL INFLAMMATION [None]
  - NAUSEA [None]
  - OLIGURIA [None]
  - PSYCHOMOTOR SKILLS IMPAIRED [None]
  - VOMITING [None]
